FAERS Safety Report 9853215 (Version 1)
Quarter: 2014Q1

REPORT INFORMATION
  Report Type: Spontaneous
  Country: ES (occurrence: ES)
  Receive Date: 20140129
  Receipt Date: 20140129
  Transmission Date: 20141002
  Serious: Yes (Other)
  Sender: FDA-Public Use
  Company Number: ES-ACTAVIS-2014-00730

PATIENT
  Age: 21 Year
  Sex: Female

DRUGS (7)
  1. FLUCONAZOLE (UNKNOWN) [Suspect]
     Indication: VULVOVAGINAL CANDIDIASIS
     Dosage: 600 MG, DAILY
  2. FLUCONAZOLE (UNKNOWN) [Suspect]
     Dosage: 600 MG, 1/WEEK MAINTENANCE
  3. FLUCONAZOLE (UNKNOWN) [Suspect]
     Dosage: 800 MG, DAILY - FIRST DAY
     Route: 065
  4. ITRACONAZOLE (UNKNOWN) [Suspect]
     Indication: VULVOVAGINAL CANDIDIASIS
     Dosage: 200 MG, UNK
     Route: 065
  5. NYSTATIN (UNKNOWN) [Suspect]
     Indication: VULVOVAGINAL CANDIDIASIS
     Dosage: 300000 U, UNKNOWN
     Route: 067
  6. BORIC ACID (UNKNOWN) [Suspect]
     Indication: VULVOVAGINAL CANDIDIASIS
     Dosage: 600 MG, BID
     Route: 067
  7. BORIC ACID (UNKNOWN) [Suspect]
     Dosage: TWICE A WEEK
     Route: 065

REACTIONS (2)
  - Drug resistance [Unknown]
  - Drug ineffective [Unknown]
